FAERS Safety Report 7863064-9 (Version None)
Quarter: 2011Q4

REPORT INFORMATION
  Report Type: 
  Country: None (occurrence: None)
  Receive Date: 20111027
  Receipt Date: 20101124
  Transmission Date: 20120403
  Serious: No
  Sender: FDA-Public Use
  Company Number: US-AMGEN-USASP2010006561

PATIENT
  Age: 64 Year
  Sex: Female

DRUGS (2)
  1. ENBREL [Suspect]
     Indication: RHEUMATOID ARTHRITIS
     Dosage: 50 MG, QWK
     Dates: start: 20100901, end: 20101104
  2. METHOTREXATE [Concomitant]
     Dates: start: 20080601

REACTIONS (4)
  - INJECTION SITE RASH [None]
  - INJECTION SITE PRURITUS [None]
  - FATIGUE [None]
  - VITAMIN D DECREASED [None]
